FAERS Safety Report 8280477-4 (Version None)
Quarter: 2012Q2

REPORT INFORMATION
  Report Type: 
  Country: None (occurrence: None)
  Receive Date: 20120412
  Receipt Date: 20120105
  Transmission Date: 20120825
  Serious: No
  Sender: FDA-Public Use
  Company Number: US-ASTRAZENECA-2012SE00910

PATIENT
  Age: 46 Year
  Sex: Male
  Weight: 53.5 kg

DRUGS (6)
  1. CREON [Concomitant]
  2. HYDROSTYNAINE [Concomitant]
  3. LISINOPRIL [Concomitant]
  4. PAXIL [Concomitant]
  5. NEXIUM [Suspect]
     Indication: BARRETT'S OESOPHAGUS
     Route: 048
  6. INSULINS(IMOLOG,CHIMOLOG N,LEVINIER) [Concomitant]

REACTIONS (2)
  - AUTONOMIC NEUROPATHY [None]
  - DRUG PRESCRIBING ERROR [None]
